FAERS Safety Report 25937733 (Version 1)
Quarter: 2025Q4

REPORT INFORMATION
  Report Type: Spontaneous
  Country: CN (occurrence: CN)
  Receive Date: 20251018
  Receipt Date: 20251018
  Transmission Date: 20260118
  Serious: Yes (Death, Other)
  Sender: AMGEN
  Company Number: CN-AMGEN-CHNSP2025205774

PATIENT

DRUGS (6)
  1. BLINATUMOMAB [Suspect]
     Active Substance: BLINATUMOMAB
     Indication: B-cell type acute leukaemia
     Dosage: 5 MICROGRAM/SQ. METER, QD, CONTINUOUS INFUSION ON DAYS 2-7
     Route: 040
  2. BLINATUMOMAB [Suspect]
     Active Substance: BLINATUMOMAB
     Dosage: 15 MICROGRAM/SQ. METER, QD, ESCALATION, FOR A TOTAL CYCLE DURATION OF 14-28 DAYS
     Route: 040
  3. DEXAMETHASONE [Concomitant]
     Active Substance: DEXAMETHASONE
     Indication: Prophylaxis
     Dosage: 5 MILLIGRAM/SQ. METER, QD, FOR 1 DAY
  4. DEXAMETHASONE [Concomitant]
     Active Substance: DEXAMETHASONE
     Dosage: UNK
     Route: 029
  5. METHOTREXATE [Concomitant]
     Active Substance: METHOTREXATE
     Route: 029
  6. CYTARABINE [Concomitant]
     Active Substance: CYTARABINE
     Route: 029

REACTIONS (11)
  - Acute lymphocytic leukaemia recurrent [Unknown]
  - Cerebral aspergillosis [Fatal]
  - Immune effector cell-associated neurotoxicity syndrome [Unknown]
  - Cytokine release syndrome [Unknown]
  - Neutropenia [Unknown]
  - Thrombocytopenia [Unknown]
  - Minimal residual disease [Unknown]
  - Central nervous system leukaemia [Unknown]
  - Therapy non-responder [Unknown]
  - Treatment failure [Unknown]
  - Infection [Unknown]
